FAERS Safety Report 12810584 (Version 1)
Quarter: 2016Q4

REPORT INFORMATION
  Report Type: Spontaneous
  Country: US (occurrence: US)
  Receive Date: 20161005
  Receipt Date: 20161005
  Transmission Date: 20170207
  Serious: No
  Sender: FDA-Public Use
  Company Number: US-TEVA-696252USA

PATIENT
  Sex: Female

DRUGS (1)
  1. COPAXONE [Suspect]
     Active Substance: GLATIRAMER ACETATE

REACTIONS (5)
  - Injection site hypoaesthesia [Unknown]
  - Injection site pain [Unknown]
  - Injection site mass [Unknown]
  - Discomfort [Unknown]
  - Tenderness [Unknown]
